FAERS Safety Report 10515202 (Version 1)
Quarter: 2014Q4

REPORT INFORMATION
  Report Type: Spontaneous
  Country: US (occurrence: US)
  Receive Date: 20141014
  Receipt Date: 20141014
  Transmission Date: 20150528
  Serious: Yes (Hospitalization, Other)
  Sender: FDA-Public Use
  Company Number: US-UNITED THERAPEUTICS-UNT-2014-008920

PATIENT
  Age: 34 Year
  Sex: Female
  Weight: 88.44 kg

DRUGS (7)
  1. ORENITRAM [Suspect]
     Active Substance: TREPROSTINIL
     Dosage: 14.75 MG, UNK
     Route: 048
  2. ORENITRAM [Suspect]
     Active Substance: TREPROSTINIL
     Dosage: 14.75 MG, UNK
     Route: 048
  3. ORENITRAM [Suspect]
     Active Substance: TREPROSTINIL
     Dosage: 14.50 MG, UNK
     Route: 048
  4. ORENITRAM [Suspect]
     Active Substance: TREPROSTINIL
     Indication: COR PULMONALE CHRONIC
     Dosage: 15 MG, Q8H
     Route: 048
     Dates: start: 20140924
  5. ORENITRAM [Suspect]
     Active Substance: TREPROSTINIL
     Dosage: 15.25 MG, UNK
     Route: 048
  6. TRACLEER [Concomitant]
     Active Substance: BOSENTAN\BOSENTAN MONOHYDRATE
     Indication: PRODUCT USED FOR UNKNOWN INDICATION
  7. ORENITRAM [Suspect]
     Active Substance: TREPROSTINIL
     Dosage: 14.25 MG, UNK
     Route: 048

REACTIONS (4)
  - Loss of consciousness [Unknown]
  - Abdominal discomfort [Unknown]
  - Oxygen consumption increased [Unknown]
  - Syncope [Unknown]

NARRATIVE: CASE EVENT DATE: 2014
